FAERS Safety Report 10255349 (Version 3)
Quarter: 2014Q3

REPORT INFORMATION
  Report Type: Spontaneous
  Country: GB (occurrence: None)
  Receive Date: 20140620
  Receipt Date: 20140805
  Transmission Date: 20150326
  Serious: Yes (Other)
  Sender: FDA-Public Use
  Company Number: 2014158477

PATIENT
  Age: 74 Year
  Sex: Male
  Weight: 58 kg

DRUGS (11)
  1. PARACETAMOL (PARACETAMOL) [Suspect]
     Active Substance: ACETAMINOPHEN
     Route: 042
     Dates: start: 20120123
  2. XELODA [Suspect]
     Active Substance: CAPECITABINE
     Indication: GASTRIC CANCER
     Dosage: 2150 MG LATEST DOSE PRIOR TO SAE: 29/NOV/2011, ORAL
     Route: 048
     Dates: start: 20110927
  3. CIPROFLOXACIN. [Suspect]
     Active Substance: CIPROFLOXACIN
     Route: 042
     Dates: start: 20120203
  4. DALTEPARIN SODIUM (DALTEPARIN SODIUM) UNKNOWN [Suspect]
     Active Substance: DALTEPARIN SODIUM
     Dosage: 5000 UITS, SUBCUTANEOUS
     Route: 058
     Dates: start: 20120123, end: 20120219
  5. EPIRUBICIN HCL [Suspect]
     Active Substance: EPIRUBICIN HYDROCHLORIDE
     Indication: GASTRIC CANCER
     Dosage: 90 MG UNIT DOSE, INTRAVENOUS
     Route: 042
     Dates: start: 20110927
  6. CISPLATIN. [Suspect]
     Active Substance: CISPLATIN
     Indication: GASTRIC CANCER
     Dosage: 107MG UNIT DOSE, INTRAVENOUS
     Route: 042
     Dates: start: 20110927
  7. AVASTIN [Suspect]
     Active Substance: BEVACIZUMAB
     Indication: GASTRIC CANCER
     Dosage: 521 MG, UNIT DOSE, INTRAVENOUS?
     Route: 042
     Dates: start: 20110927
  8. FUROSEMIDE. [Suspect]
     Active Substance: FUROSEMIDE
     Dosage: 90MG UNIT DOSE, INTRAVENOUS
     Route: 042
     Dates: start: 20110927
  9. TAZOCIN [Suspect]
     Active Substance: PIPERACILLIN SODIUM\TAZOBACTAM SODIUM
     Route: 042
     Dates: start: 20120121
  10. SALBUTAMOL (SALBUTAMOL) [Suspect]
     Active Substance: ALBUTEROL
     Dosage: 2.5 MG, 4X/DAY, OTHER
     Route: 050
     Dates: start: 20120123
  11. TEMAZEPAM (TEMAZEPAM) [Suspect]
     Active Substance: TEMAZEPAM
     Dosage: 10 MG, UNK, ORAL
     Route: 048
     Dates: start: 20120203

REACTIONS (4)
  - Incorrect drug administration rate [None]
  - Atrial fibrillation [None]
  - Arrhythmia [None]
  - Blood phosphorus decreased [None]

NARRATIVE: CASE EVENT DATE: 20120204
